FAERS Safety Report 18852901 (Version 1)
Quarter: 2021Q1

REPORT INFORMATION
  Report Type: Spontaneous
  Country: NL (occurrence: NL)
  Receive Date: 20210205
  Receipt Date: 20210205
  Transmission Date: 20210420
  Serious: Yes (Other)
  Sender: FDA-Public Use
  Company Number: NVSC2021NL011569

PATIENT
  Sex: Female
  Weight: 120 kg

DRUGS (6)
  1. TOPIRAMAAT SANDOZ TABLET 100 MG, FILMOMHULDE TABLETTEN [Suspect]
     Active Substance: TOPIRAMATE
     Indication: POST-TRAUMATIC STRESS DISORDER
     Dosage: 50 MG, QD
     Route: 048
     Dates: start: 2018
  2. TOPIRAMAAT SANDOZ TABLET 100 MG, FILMOMHULDE TABLETTEN [Suspect]
     Active Substance: TOPIRAMATE
     Indication: DISSOCIATIVE DISORDER
     Dosage: 100 MG, QD (1X PER DAG 1 TABLET)
     Route: 048
     Dates: start: 2018
  3. CLOMIPRAMINE [Suspect]
     Active Substance: CLOMIPRAMINE
     Indication: POST-TRAUMATIC STRESS DISORDER
     Dosage: 300 MG, QD
     Route: 065
     Dates: start: 2013
  4. CLOMIPRAMINE [Suspect]
     Active Substance: CLOMIPRAMINE
     Indication: DEPRESSION
     Dosage: 150 MG, QD (1X DAAGS 2 TABLETTEN)
     Route: 065
     Dates: start: 2013
  5. TOPIRAMAAT SANDOZ TABLET 100 MG, FILMOMHULDE TABLETTEN [Suspect]
     Active Substance: TOPIRAMATE
     Dosage: UNK
     Route: 065
  6. CLOMIPRAMINE [Suspect]
     Active Substance: CLOMIPRAMINE
     Dosage: UNK
     Route: 065

REACTIONS (9)
  - Acromegaly [Unknown]
  - Headache [Unknown]
  - Weight increased [Unknown]
  - Product use in unapproved indication [Unknown]
  - Suicide attempt [Unknown]
  - Face oedema [Unknown]
  - Paraesthesia [Not Recovered/Not Resolved]
  - Off label use [Unknown]
  - Liver function test increased [Unknown]

NARRATIVE: CASE EVENT DATE: 2018
